FAERS Safety Report 12736128 (Version 2)
Quarter: 2016Q3

REPORT INFORMATION
  Report Type: Spontaneous
  Country: US (occurrence: US)
  Receive Date: 20160912
  Receipt Date: 20160920
  Transmission Date: 20161109
  Serious: Yes (Other)
  Sender: FDA-Public Use
  Company Number: US-PFIZER INC-2016366863

PATIENT
  Age: 89 Year
  Sex: Female
  Weight: 53 kg

DRUGS (4)
  1. LATANOPROST. [Suspect]
     Active Substance: LATANOPROST
     Indication: INTRAOCULAR PRESSURE TEST ABNORMAL
     Dosage: 1 DROP IN EACH EYE AT BEDTIME
     Route: 047
  2. SYSTANE ULTRA [Concomitant]
     Active Substance: POLYETHYLENE GLYCOL 400\PROPYLENE GLYCOL
     Indication: DRY EYE
     Dosage: ONLY DO ONE DROP IN EACH EYE A DAY
     Route: 047
  3. LATANOPROST. [Suspect]
     Active Substance: LATANOPROST
     Dosage: 2 GTT, DAILY (1GTT OU QHS)
     Route: 047
     Dates: start: 20120523
  4. LATANOPROST. [Suspect]
     Active Substance: LATANOPROST
     Indication: GLAUCOMA
     Dosage: 1 DROP IN EACH EYE AT BEDTIME
     Route: 047
     Dates: start: 201607

REACTIONS (3)
  - Incorrect dose administered [Unknown]
  - Visual acuity reduced [Unknown]
  - Body height decreased [Unknown]
